FAERS Safety Report 8002655-1 (Version None)
Quarter: 2011Q4

REPORT INFORMATION
  Report Type: 
  Country: None (occurrence: None)
  Receive Date: 20111222
  Receipt Date: 20111206
  Transmission Date: 20120403
  Serious: Yes (Hospitalization)
  Sender: FDA-Public Use
  Company Number: FR-GLAXOSMITHKLINE-Z0006181A

PATIENT
  Sex: Male
  Weight: 79 kg

DRUGS (1)
  1. SUNITINIB MALATE [Suspect]
     Indication: RENAL CELL CARCINOMA
     Dosage: 50MG PER DAY
     Route: 048
     Dates: start: 20100920

REACTIONS (1)
  - ATRIAL FLUTTER [None]
